FAERS Safety Report 4369238-6 (Version None)
Quarter: 2004Q2

REPORT INFORMATION
  Report Type: 
  Country: None (occurrence: None)
  Receive Date: 20040603
  Receipt Date: 20031118
  Transmission Date: 20050107
  Serious: No
  Sender: FDA-Public Use
  Company Number: US-GLAXOSMITHKLINE-A0440192A

PATIENT
  Age: 37 Year
  Sex: Female

DRUGS (2)
  1. AUGMENTIN [Suspect]
     Indication: SINUSITIS
     Dosage: 2TAB TWICE PER DAY
     Route: 048
     Dates: start: 20031117, end: 20031117
  2. AUGMENTIN [Suspect]
     Route: 048
     Dates: start: 20021231, end: 20030109

REACTIONS (2)
  - DIARRHOEA [None]
  - VOMITING [None]
